FAERS Safety Report 23734403 (Version 1)
Quarter: 2024Q2

REPORT INFORMATION
  Report Type: Spontaneous
  Country: CA (occurrence: None)
  Receive Date: 20240412
  Receipt Date: 20240412
  Transmission Date: 20240717
  Serious: Yes (Other)
  Sender: FDA-Public Use
  Company Number: CA-ROCHE-3543771

PATIENT
  Age: 38 Year
  Sex: Female

DRUGS (2)
  1. BEVACIZUMAB [Suspect]
     Active Substance: BEVACIZUMAB
     Indication: Neurofibromatosis
     Route: 042
  2. BEVACIZUMAB [Suspect]
     Active Substance: BEVACIZUMAB
     Indication: Acoustic neuroma

REACTIONS (5)
  - Drug effective for unapproved indication [Recovered/Resolved]
  - Hypertension [Recovered/Resolved]
  - Nephrotic syndrome [Recovered/Resolved]
  - Deafness [Recovered/Resolved]
  - Off label use [Unknown]
